FAERS Safety Report 8517091 (Version 2)
Quarter: 2012Q4

REPORT INFORMATION
  Report Type: 
  Country: US (occurrence: US)
  Receive Date: 20120417
  Receipt Date: 20121016
  Transmission Date: 20130627
  Serious: No
  Sender: FDA-Public Use
  Company Number: US-ASTRAZENECA-2011SE56693

PATIENT
  Age: 48 Year
  Sex: Male

DRUGS (1)
  1. NEXIUM [Suspect]
     Route: 048

REACTIONS (5)
  - Adverse event [Unknown]
  - Hyperchlorhydria [Unknown]
  - Activities of daily living impaired [Unknown]
  - Vomiting [Unknown]
  - Drug dose omission [Unknown]
